FAERS Safety Report 7986221-X (Version None)
Quarter: 2011Q4

REPORT INFORMATION
  Report Type: 
  Country: None (occurrence: None)
  Receive Date: 20111216
  Receipt Date: 20111207
  Transmission Date: 20120403
  Serious: Yes (Other)
  Sender: FDA-Public Use
  Company Number: JP-GLAXOSMITHKLINE-B0764291A

PATIENT
  Age: 28 Year
  Sex: Male

DRUGS (2)
  1. LAMICTAL [Suspect]
     Indication: COMPLEX PARTIAL SEIZURES
     Dosage: 100MG PER DAY
     Route: 048
  2. CARBAMAZEPINE [Suspect]
     Indication: COMPLEX PARTIAL SEIZURES
     Route: 048

REACTIONS (3)
  - CSF TEST ABNORMAL [None]
  - DRUG RASH WITH EOSINOPHILIA AND SYSTEMIC SYMPTOMS [None]
  - EPILEPSY [None]
